FAERS Safety Report 6006638-2 (Version None)
Quarter: 2008Q4

REPORT INFORMATION
  Report Type: 
  Country: None (occurrence: None)
  Receive Date: 20081215
  Receipt Date: 20081201
  Transmission Date: 20090506
  Serious: Yes (Other)
  Sender: FDA-Public Use
  Company Number: 2008AL012083

PATIENT
  Age: 31 Year
  Sex: Female

DRUGS (2)
  1. IRINOTECAN HYDROCHLORIDE INJECTION, 20MG/ML (40MG/2ML AND 100MG/5ML) ( [Suspect]
     Indication: CERVIX CARCINOMA STAGE I
     Dosage: 360 MG;
  2. NEDAPLATIN [Concomitant]

REACTIONS (5)
  - BLOOD FOLLICLE STIMULATING HORMONE INCREASED [None]
  - MALAISE [None]
  - MENOPAUSAL SYMPTOMS [None]
  - OESTRADIOL DECREASED [None]
  - OVARIAN DISORDER [None]
